FAERS Safety Report 6847228-9 (Version None)
Quarter: 2010Q3

REPORT INFORMATION
  Report Type: 
  Country: None (occurrence: None)
  Receive Date: 20100716
  Receipt Date: 20100712
  Transmission Date: 20110219
  Serious: Yes (Other)
  Sender: FDA-Public Use
  Company Number: CH-TEVA-241100ISR

PATIENT
  Age: 47 Year
  Sex: Male

DRUGS (1)
  1. FLUOROURACIL [Suspect]
     Indication: ANAL CANCER
     Route: 041

REACTIONS (2)
  - INJECTION SITE EXTRAVASATION [None]
  - INJECTION SITE INFLAMMATION [None]
